FAERS Safety Report 9740291 (Version 2)
Quarter: 2013Q4

REPORT INFORMATION
  Report Type: Spontaneous
  Country: US (occurrence: US)
  Receive Date: 20131209
  Receipt Date: 20131223
  Transmission Date: 20140711
  Serious: No
  Sender: FDA-Public Use
  Company Number: US-GILEAD-2013-0089497

PATIENT
  Sex: Male

DRUGS (5)
  1. LETAIRIS [Suspect]
     Indication: PULMONARY HYPERTENSION
     Dosage: 10 MG, QD
     Dates: start: 20131112
  2. LETAIRIS [Suspect]
     Indication: PULMONARY HYPERTENSION
  3. VELETRI [Concomitant]
  4. ADCIRCA [Concomitant]
  5. COUMADIN                           /00014802/ [Concomitant]

REACTIONS (1)
  - Catheter site haemorrhage [Unknown]
